FAERS Safety Report 18133679 (Version 5)
Quarter: 2022Q1

REPORT INFORMATION
  Report Type: Spontaneous
  Country: ES (occurrence: ES)
  Receive Date: 20200811
  Receipt Date: 20220121
  Transmission Date: 20220423
  Serious: Yes (Hospitalization, Other)
  Sender: FDA-Public Use
  Company Number: ES-DRREDDYS-USA/SPN/20/0125872

PATIENT
  Age: 77 Year
  Sex: Female

DRUGS (11)
  1. BORTEZOMIB [Suspect]
     Active Substance: BORTEZOMIB
     Indication: Plasma cell myeloma
  2. BORTEZOMIB [Suspect]
     Active Substance: BORTEZOMIB
     Indication: Amyloidosis
     Dates: start: 20190416
  3. DEXAMETHASONE [Suspect]
     Active Substance: DEXAMETHASONE
     Indication: Amyloidosis
     Dosage: ONCE DAILY FROM DAY 1 TO DAY 4 AND FROM DAY 9 TO DAY 12 OF CYCLE
     Route: 048
  4. DEXAMETHASONE [Suspect]
     Active Substance: DEXAMETHASONE
     Indication: Plasma cell myeloma
  5. BORTEZOMIB [Suspect]
     Active Substance: BORTEZOMIB
     Indication: Plasma cell myeloma
     Dosage: ON DAYS PLUS 1, PLUS 4, PLUS 8 AND PLUS 11 OF EACH CYCLE
     Dates: start: 20190416
  6. LENALIDOMIDE [Concomitant]
     Active Substance: LENALIDOMIDE
     Indication: Plasma cell myeloma
     Dosage: LENALIDOMIDE FROM DAY 1 TO DAY 21 OF EACH CYCLE DOSIS :10 MILIGRAMO
     Route: 048
  7. LENALIDOMIDE [Concomitant]
     Active Substance: LENALIDOMIDE
  8. OLMESARTAN MEDOXOMIL [Concomitant]
     Active Substance: OLMESARTAN MEDOXOMIL
     Indication: Hypertension
     Dosage: 20 MILLIGRAM, QD
  9. AMLODIPINE [Concomitant]
     Active Substance: AMLODIPINE BESYLATE
     Indication: Hypertension
     Dosage: 5 MILLIGRAM, QD
     Route: 065
  10. DEXAMETHASONE [Concomitant]
     Active Substance: DEXAMETHASONE
     Indication: Plasma cell myeloma
     Dosage: FROM DAY 1 TO DAY 4 AND DAY 9 TO DAY 12 OF EACH CYCLE.
     Route: 048
  11. DEXAMETHASONE [Concomitant]
     Active Substance: DEXAMETHASONE
     Indication: Amyloidosis

REACTIONS (2)
  - Guillain-Barre syndrome [Recovered/Resolved]
  - Neurotoxicity [Recovered/Resolved]

NARRATIVE: CASE EVENT DATE: 20190528
